FAERS Safety Report 11246596 (Version 1)
Quarter: 2015Q3

REPORT INFORMATION
  Report Type: Spontaneous
  Country: US (occurrence: None)
  Receive Date: 20150706
  Receipt Date: 20150706
  Transmission Date: 20151125
  Serious: No
  Sender: FDA-Public Use
  Company Number: None

PATIENT
  Age: 54 Year
  Sex: Male
  Weight: 146.97 kg

DRUGS (8)
  1. METFORMIN [Suspect]
     Active Substance: METFORMIN HYDROCHLORIDE
     Indication: TYPE 2 DIABETES MELLITUS
     Dosage: TAKEN BY MOUTH
     Dates: start: 20121130, end: 20150506
  2. NORVIR [Concomitant]
     Active Substance: RITONAVIR
  3. REYATAZ [Concomitant]
     Active Substance: ATAZANAVIR SULFATE
  4. TRUVADA [Concomitant]
     Active Substance: EMTRICITABINE\TENOFOVIR DISOPROXIL FUMARATE
  5. ATORVASTATIN [Concomitant]
     Active Substance: ATORVASTATIN
  6. ALLOPURINOL. [Concomitant]
     Active Substance: ALLOPURINOL
  7. VITAMIN D [Concomitant]
     Active Substance: CHOLECALCIFEROL
  8. ENALAPRIL [Concomitant]
     Active Substance: ENALAPRIL

REACTIONS (5)
  - Blood corticotrophin decreased [None]
  - Blood cortisol decreased [None]
  - Asthenia [None]
  - Gait disturbance [None]
  - Lactic acidosis [None]

NARRATIVE: CASE EVENT DATE: 20150530
